FAERS Safety Report 8922492 (Version 1)
Quarter: 2012Q4

REPORT INFORMATION
  Report Type: Report from Study
  Country: PL (occurrence: PL)
  Receive Date: 20121123
  Receipt Date: 20121123
  Transmission Date: 20130627
  Serious: Yes (Life-Threatening, Hospitalization, Other)
  Sender: FDA-Public Use
  Company Number: PHHO2011PL01135

PATIENT
  Age: 81 Year
  Sex: Male
  Weight: 72.6 kg

DRUGS (19)
  1. DIGOXIN [Suspect]
     Indication: CARDIAC FAILURE
     Dosage: 0.1 mg, QD
     Route: 048
  2. CARVEDILOL [Suspect]
     Indication: CARDIAC FAILURE
     Dosage: 3.125 mg, QD
     Route: 048
  3. CARVEDILOL [Suspect]
     Dosage: 3.125 mg, QD
     Route: 048
     Dates: start: 20120312
  4. BLINDED ALISKIREN [Suspect]
     Indication: CARDIAC FAILURE
     Dosage: Code not broken
     Route: 048
     Dates: start: 20090707
  5. BLINDED ENALAPRIL [Suspect]
     Indication: CARDIAC FAILURE
     Dosage: Code not broken
     Route: 048
     Dates: start: 20090707
  6. BLINDED NO TREATMENT RECEIVED [Suspect]
     Indication: CARDIAC FAILURE
     Dosage: Code not broken
     Route: 048
     Dates: start: 20090707
  7. BLINDED ALISKIREN [Suspect]
     Dosage: Code not broken
     Route: 048
     Dates: start: 20120930
  8. BLINDED ENALAPRIL [Suspect]
     Dosage: Code not broken
     Route: 048
     Dates: start: 20120930
  9. BLINDED NO TREATMENT RECEIVED [Suspect]
     Dosage: Code not broken
     Route: 048
     Dates: start: 20120930
  10. COZAAR [Concomitant]
     Indication: CARDIAC FAILURE
     Dosage: 50 mg, QD
     Route: 048
  11. LIPITOR [Concomitant]
     Indication: DYSLIPIDAEMIA
     Dosage: 10 mg, QD
     Route: 048
  12. HYDROCHLOROTHIAZIDE [Concomitant]
     Indication: CARDIAC FAILURE
     Dosage: 25 mg, QD
     Dates: start: 20090707
  13. ACETYLSALICYLIC ACID [Concomitant]
     Indication: PROPHYLAXIS
     Dosage: 150 mg, QD
     Route: 048
  14. ALDACTONE [Concomitant]
     Indication: CARDIAC FAILURE
     Dosage: 50 mg, QD
     Route: 048
     Dates: start: 20120312
  15. ASPIRIN [Concomitant]
     Indication: PROPHYLAXIS
     Dosage: 150 mg, QD
     Route: 048
     Dates: start: 20110120
  16. BUDESONIDE [Concomitant]
     Indication: CHRONIC OBSTRUCTIVE PULMONARY DISEASE
     Dosage: 200 ug, BID
     Route: 042
     Dates: start: 20111104
  17. FORMOTEROL [Concomitant]
     Indication: CHRONIC OBSTRUCTIVE PULMONARY DISEASE
     Dosage: 12 ug, BID
     Route: 042
     Dates: start: 20111121
  18. TIOTROPIUM [Concomitant]
     Indication: CHRONIC OBSTRUCTIVE PULMONARY DISEASE
     Dosage: 10 ug, QD
     Route: 042
     Dates: start: 20120316
  19. ISOSORBIDE MONONITE [Concomitant]
     Indication: MYOCARDIAL ISCHAEMIA
     Dosage: 50 ug, QD
     Route: 030
     Dates: start: 20121104

REACTIONS (7)
  - Atrioventricular block complete [Recovered/Resolved]
  - Dyspnoea [Not Recovered/Not Resolved]
  - Orthopnoea [Not Recovered/Not Resolved]
  - Bradyarrhythmia [Not Recovered/Not Resolved]
  - Bundle branch block left [Not Recovered/Not Resolved]
  - Ventricular tachycardia [Recovered/Resolved]
  - Atrial fibrillation [Unknown]
